FAERS Safety Report 18198361 (Version 2)
Quarter: 2020Q3

REPORT INFORMATION
  Report Type: Spontaneous
  Country: US (occurrence: US)
  Receive Date: 20200826
  Receipt Date: 20200914
  Transmission Date: 20201103
  Serious: Yes (Hospitalization)
  Sender: FDA-Public Use
  Company Number: US-ASTRAZENECA-2020SF05446

PATIENT
  Age: 25250 Day
  Sex: Female
  Weight: 70.3 kg

DRUGS (2)
  1. BYDUREON BCISE [Suspect]
     Active Substance: EXENATIDE
     Indication: TYPE 2 DIABETES MELLITUS
     Route: 058
     Dates: start: 20181010
  2. LANTUS [Concomitant]
     Active Substance: INSULIN GLARGINE
     Indication: TYPE 2 DIABETES MELLITUS
     Dates: start: 20181109

REACTIONS (4)
  - Memory impairment [Recovering/Resolving]
  - Decreased appetite [Recovering/Resolving]
  - Transient ischaemic attack [Recovering/Resolving]
  - Device leakage [Recovering/Resolving]

NARRATIVE: CASE EVENT DATE: 20200714
